FAERS Safety Report 7835741-7 (Version None)
Quarter: 2011Q4

REPORT INFORMATION
  Report Type: 
  Country: None (occurrence: None)
  Receive Date: 20111024
  Receipt Date: 20111019
  Transmission Date: 20120403
  Serious: Yes (Other)
  Sender: FDA-Public Use
  Company Number: US-PFIZER INC-2011252527

PATIENT
  Sex: Female
  Weight: 54.422 kg

DRUGS (2)
  1. LYRICA [Suspect]
     Indication: FIBROMYALGIA
     Dosage: 75 MG, 2X/DAY
     Route: 048
     Dates: start: 20111017
  2. CYMBALTA [Concomitant]
     Dosage: UNK

REACTIONS (4)
  - DIZZINESS [None]
  - MIGRAINE [None]
  - SWELLING FACE [None]
  - MENTAL IMPAIRMENT [None]
